FAERS Safety Report 24185034 (Version 1)
Quarter: 2024Q3

REPORT INFORMATION
  Report Type: Spontaneous
  Country: US (occurrence: None)
  Receive Date: 20240807
  Receipt Date: 20240807
  Transmission Date: 20241017
  Serious: Yes (Life-Threatening)
  Sender: Public
  Company Number: None

PATIENT
  Age: 33 Year
  Sex: Female

DRUGS (1)
  1. CIMZIA [Suspect]
     Active Substance: CERTOLIZUMAB PEGOL
     Indication: Ankylosing spondylitis
     Dosage: 400 MG EVERY 4 WEEKS SUBCUTANEOUS
     Route: 058
     Dates: start: 20240716, end: 20240716

REACTIONS (8)
  - Peripheral swelling [None]
  - Rash [None]
  - Nausea [None]
  - Vomiting [None]
  - Lip swelling [None]
  - Myalgia [None]
  - Tachypnoea [None]
  - Tachycardia [None]

NARRATIVE: CASE EVENT DATE: 20240717
